FAERS Safety Report 25936692 (Version 2)
Quarter: 2025Q4

REPORT INFORMATION
  Report Type: Other
  Country: US (occurrence: US)
  Receive Date: 20251017
  Receipt Date: 20251108
  Transmission Date: 20260118
  Serious: Yes (Other)
  Sender: TRAVERE THERAPEUTICS
  Company Number: US-TRAVERE-2025TVT01916

PATIENT
  Age: 45 Year
  Sex: Male

DRUGS (2)
  1. FILSPARI [Suspect]
     Active Substance: SPARSENTAN
     Indication: IgA nephropathy
     Route: 048
     Dates: start: 20250703, end: 20250901
  2. FILSPARI [Suspect]
     Active Substance: SPARSENTAN
     Route: 048
     Dates: start: 20251008

REACTIONS (5)
  - Protein total increased [Unknown]
  - Blood creatinine increased [Recovering/Resolving]
  - Urinary tract infection [Unknown]
  - Prostatitis [Unknown]
  - Anal abscess [Unknown]

NARRATIVE: CASE EVENT DATE: 20250901
